FAERS Safety Report 16046177 (Version 1)
Quarter: 2019Q2

REPORT INFORMATION
  Report Type: Spontaneous
  Country: US (occurrence: US)
  Receive Date: 20190307
  Receipt Date: 20190307
  Transmission Date: 20190711
  Serious: No
  Sender: FDA-Public Use
  Company Number: None

PATIENT
  Age: 67 Year
  Sex: Female
  Weight: 72.9 kg

DRUGS (10)
  1. VITAMIN D NOS [Concomitant]
     Active Substance: VITAMIN D NOS
  2. ECHINACEA AS NEEDED [Concomitant]
  3. LEVAQUIN [Suspect]
     Active Substance: LEVOFLOXACIN
     Indication: SINUSITIS
     Route: 048
  4. VITAMIN C [Concomitant]
     Active Substance: ASCORBIC ACID
  5. IBUPROFEN. [Concomitant]
     Active Substance: IBUPROFEN
  6. LOSARTAN POTASSIUM 25 MG [Concomitant]
     Active Substance: LOSARTAN POTASSIUM
  7. ARNUITY ELLIPTA [Concomitant]
     Active Substance: FLUTICASONE FUROATE
  8. AREDS2 [Concomitant]
  9. SYNTHROID [Concomitant]
     Active Substance: LEVOTHYROXINE SODIUM
  10. VITAMIN B [Concomitant]
     Active Substance: VITAMIN B

REACTIONS (6)
  - Musculoskeletal pain [None]
  - Back pain [None]
  - Middle insomnia [None]
  - Muscular weakness [None]
  - Pain in extremity [None]
  - Arthralgia [None]
